FAERS Safety Report 10574324 (Version 1)
Quarter: 2014Q4

REPORT INFORMATION
  Report Type: Spontaneous
  Country: CH (occurrence: CH)
  Receive Date: 20141110
  Receipt Date: 20141110
  Transmission Date: 20150529
  Serious: Yes (Other)
  Sender: FDA-Public Use
  Company Number: CH-INCYTE CORPORATION-2014IN003365

PATIENT
  Age: 80 Year
  Sex: Female
  Weight: 58 kg

DRUGS (7)
  1. LITALIR [Suspect]
     Active Substance: HYDROXYUREA
     Indication: POLYCYTHAEMIA VERA
     Dosage: 2 DF, QD
     Route: 065
     Dates: start: 201201, end: 201305
  2. JAKAFI [Suspect]
     Active Substance: RUXOLITINIB
     Dosage: 30 MG, QD
     Route: 065
  3. LITALIR [Suspect]
     Active Substance: HYDROXYUREA
     Dosage: 2 TAB, 1 TAB, 2 TAB ALTERNATIVELY
     Route: 065
     Dates: start: 201303
  4. JAKAFI [Suspect]
     Active Substance: RUXOLITINIB
     Indication: POLYCYTHAEMIA VERA
     Dosage: 20 MG, BID
     Route: 065
     Dates: start: 201303, end: 201305
  5. LITALIR [Suspect]
     Active Substance: HYDROXYUREA
     Dosage: 500 MG, 6D/7
     Route: 065
  6. LITALIR [Suspect]
     Active Substance: HYDROXYUREA
     Dosage: 500 MG, QD
     Route: 065
  7. JAKAFI [Suspect]
     Active Substance: RUXOLITINIB
     Indication: OFF LABEL USE
     Dosage: 20 MG, BID
     Route: 065

REACTIONS (8)
  - Hepatomegaly [Unknown]
  - Withdrawal syndrome [Unknown]
  - Superior sagittal sinus thrombosis [Unknown]
  - Thrombocytopenia [Unknown]
  - Splenic rupture [Unknown]
  - Metaplasia [Unknown]
  - Transverse sinus thrombosis [Unknown]
  - Anaemia [Unknown]

NARRATIVE: CASE EVENT DATE: 201304
